FAERS Safety Report 15750307 (Version 1)
Quarter: 2018Q4

REPORT INFORMATION
  Report Type: Spontaneous
  Country: CH (occurrence: CH)
  Receive Date: 20181221
  Receipt Date: 20181221
  Transmission Date: 20190205
  Serious: Yes (Hospitalization)
  Sender: FDA-Public Use
  Company Number: CH-JNJFOC-20181225988

PATIENT
  Age: 84 Year
  Sex: Male

DRUGS (3)
  1. APROVEL [Concomitant]
     Active Substance: IRBESARTAN
     Route: 065
  2. XARELTO [Suspect]
     Active Substance: RIVAROXABAN
     Indication: ATRIAL FIBRILLATION
     Route: 048
     Dates: start: 20180409, end: 20181114
  3. APROVEL [Concomitant]
     Active Substance: IRBESARTAN
     Route: 065

REACTIONS (3)
  - Hypersomnia [Recovered/Resolved]
  - Confusional state [Recovered/Resolved]
  - Cerebral haemorrhage [Recovering/Resolving]

NARRATIVE: CASE EVENT DATE: 20181112
